FAERS Safety Report 11773386 (Version 1)
Quarter: 2015Q4

REPORT INFORMATION
  Report Type: Spontaneous
  Country: US (occurrence: US)
  Receive Date: 20151124
  Receipt Date: 20151124
  Transmission Date: 20160304
  Serious: Yes (Hospitalization)
  Sender: FDA-Public Use
  Company Number: US-BIOGENIDEC-2015BI152927

PATIENT
  Age: 56 Year
  Sex: Male

DRUGS (1)
  1. TECFIDERA [Suspect]
     Active Substance: DIMETHYL FUMARATE
     Indication: MULTIPLE SCLEROSIS
     Dates: start: 20130416, end: 20150506

REACTIONS (5)
  - Urinary tract infection [Recovered/Resolved]
  - Decreased immune responsiveness [Recovered/Resolved]
  - Sepsis [Recovered/Resolved]
  - Hemiparesis [Not Recovered/Not Resolved]
  - Cystitis [Recovered/Resolved]
